FAERS Safety Report 6162396-2 (Version None)
Quarter: 2009Q2

REPORT INFORMATION
  Report Type: 
  Country: None (occurrence: None)
  Receive Date: 20090421
  Receipt Date: 20090421
  Transmission Date: 20091009
  Serious: Yes (Other)
  Sender: FDA-Public Use
  Company Number: US-PFIZER INC-2009171629

PATIENT
  Sex: Female
  Weight: 78.005 kg

DRUGS (11)
  1. LIPITOR [Suspect]
     Indication: BLOOD CHOLESTEROL INCREASED
     Dosage: 40 MG, 1X/DAY
     Route: 048
     Dates: start: 20080926, end: 20090203
  2. ZITHROMAX [Suspect]
     Indication: STAPHYLOCOCCAL INFECTION
     Dosage: UNK
     Route: 048
     Dates: start: 20090207, end: 20090211
  3. ALL OTHER THERAPEUTIC PRODUCTS [Concomitant]
     Dosage: UNK
  4. ACETYLSALICYLIC ACID [Concomitant]
     Dosage: UNK
  5. ACTONEL [Concomitant]
     Dosage: UNK
  6. PEPCID [Concomitant]
     Dosage: UNK
  7. FOLIC ACID [Concomitant]
     Dosage: UNK
  8. COLACE [Concomitant]
     Dosage: UNK
  9. ACIPHEX [Concomitant]
     Dosage: UNK
  10. ASCORBIC ACID [Concomitant]
     Dosage: UNK
  11. CALCIUM [Concomitant]
     Dosage: UNK

REACTIONS (2)
  - HEPATIC FAILURE [None]
  - STAPHYLOCOCCAL INFECTION [None]
